FAERS Safety Report 4973545-3 (Version None)
Quarter: 2006Q2

REPORT INFORMATION
  Report Type: 
  Country: None (occurrence: None)
  Receive Date: 20060413
  Receipt Date: 20060413
  Transmission Date: 20061013
  Serious: Yes (Death)
  Sender: FDA-Public Use
  Company Number: None

PATIENT
  Age: 43 Year
  Sex: Male
  Weight: 104.3273 kg

DRUGS (1)
  1. LISINOPRIL [Suspect]
     Indication: HYPERTENSION
     Dosage: 20 MG   X1  PO
     Route: 048
     Dates: start: 20060216

REACTIONS (7)
  - ANGIONEUROTIC OEDEMA [None]
  - CARDIO-RESPIRATORY ARREST [None]
  - CONDITION AGGRAVATED [None]
  - DYSPHAGIA [None]
  - PHARYNX DISCOMFORT [None]
  - SMOKER [None]
  - THROAT IRRITATION [None]
